FAERS Safety Report 9592473 (Version 1)
Quarter: 2013Q4

REPORT INFORMATION
  Report Type: Spontaneous
  Country: US (occurrence: None)
  Receive Date: 20131003
  Receipt Date: 20131003
  Transmission Date: 20140711
  Serious: Yes (Hospitalization)
  Sender: FDA-Public Use
  Company Number: None

PATIENT
  Age: 88 Year
  Sex: Female
  Weight: 50 kg

DRUGS (6)
  1. WARFARIN [Suspect]
     Indication: DEEP VEIN THROMBOSIS
     Dosage: 2 MG ALT WITH 3, QD, ORAL?UNK-PRIOR TO ADMISSION
     Route: 048
  2. WARFARIN [Suspect]
     Indication: PULMONARY EMBOLISM
     Dosage: 2 MG ALT WITH 3, QD, ORAL?UNK-PRIOR TO ADMISSION
     Route: 048
  3. HYDROXYUREA [Concomitant]
  4. FUROSEMIDE [Concomitant]
  5. FERRUS SULFATE [Concomitant]
  6. DEXLANSOPRAZOLE [Concomitant]

REACTIONS (3)
  - Gastrointestinal haemorrhage [None]
  - International normalised ratio increased [None]
  - Hypophagia [None]
